FAERS Safety Report 7817117-1 (Version None)
Quarter: 2011Q4

REPORT INFORMATION
  Report Type: 
  Country: None (occurrence: None)
  Receive Date: 20111014
  Receipt Date: 20111014
  Transmission Date: 20120403
  Serious: Yes (Other)
  Sender: FDA-Public Use
  Company Number: None

PATIENT
  Sex: Female
  Weight: 99.7913 kg

DRUGS (1)
  1. LEVAQUIN [Suspect]
     Indication: OROPHARYNGEAL PAIN
     Dosage: 250 MG 1 PER DAY ORAL
     Route: 048
     Dates: start: 20110721, end: 20110801

REACTIONS (1)
  - TENDON RUPTURE [None]
